FAERS Safety Report 9843077 (Version 1)
Quarter: 2014Q1

REPORT INFORMATION
  Report Type: Spontaneous
  Country: MX (occurrence: MX)
  Receive Date: 20140124
  Receipt Date: 20140124
  Transmission Date: 20141002
  Serious: Yes (Other)
  Sender: FDA-Public Use
  Company Number: MX-AMGEN-MEXSP2014004056

PATIENT
  Sex: Male

DRUGS (1)
  1. VECTIBIX [Suspect]
     Indication: COLON CANCER
     Dosage: UNK
     Route: 065
     Dates: start: 201310, end: 201312

REACTIONS (1)
  - Rash [Not Recovered/Not Resolved]
